FAERS Safety Report 23452936 (Version 1)
Quarter: 2024Q1

REPORT INFORMATION
  Report Type: Spontaneous
  Country: US (occurrence: US)
  Receive Date: 20240129
  Receipt Date: 20240129
  Transmission Date: 20240409
  Serious: Yes (Hospitalization)
  Sender: FDA-Public Use
  Company Number: US-JNJFOC-20240151388

PATIENT
  Sex: Female

DRUGS (1)
  1. STELARA [Suspect]
     Active Substance: USTEKINUMAB
     Indication: Crohn^s disease
     Route: 040
     Dates: start: 20240116

REACTIONS (4)
  - Infusion related reaction [Unknown]
  - Swollen tongue [Unknown]
  - Sensation of foreign body [Unknown]
  - Throat irritation [Unknown]

NARRATIVE: CASE EVENT DATE: 20240116
